FAERS Safety Report 7015753-6 (Version None)
Quarter: 2010Q3

REPORT INFORMATION
  Report Type: 
  Country: None (occurrence: None)
  Receive Date: 20100927
  Receipt Date: 20100430
  Transmission Date: 20110219
  Serious: No
  Sender: FDA-Public Use
  Company Number: US-ASTRAZENECA-2010SE19754

PATIENT
  Age: 66 Year
  Sex: Female

DRUGS (5)
  1. ARIMIDEX [Suspect]
     Route: 048
     Dates: start: 20070101
  2. EFFEXOR [Concomitant]
     Indication: HOT FLUSH
  3. CALCIUM [Concomitant]
  4. VITAMINS [Concomitant]
  5. RESTASIS [Concomitant]

REACTIONS (7)
  - ARTHRALGIA [None]
  - EXOSTOSIS [None]
  - FALL [None]
  - HOT FLUSH [None]
  - MUSCULOSKELETAL PAIN [None]
  - MYALGIA [None]
  - ROTATOR CUFF SYNDROME [None]
